FAERS Safety Report 5325832-7 (Version None)
Quarter: 2007Q2

REPORT INFORMATION
  Report Type: 
  Country: None (occurrence: None)
  Receive Date: 20070510
  Receipt Date: 20070425
  Transmission Date: 20071010
  Serious: Yes (Other)
  Sender: FDA-Public Use
  Company Number: PHBS2007JP07550

PATIENT
  Age: 77 Year
  Sex: Male

DRUGS (1)
  1. VISUDYNE [Suspect]
     Indication: POLYPOIDAL CHOROIDAL VASCULOPATHY

REACTIONS (8)
  - CHOROIDAL HAEMORRHAGE [None]
  - DETACHMENT OF RETINAL PIGMENT EPITHELIUM [None]
  - DISEASE RECURRENCE [None]
  - POLYPOIDAL CHOROIDAL VASCULOPATHY [None]
  - RETINAL EXUDATES [None]
  - RETINAL HAEMORRHAGE [None]
  - VISUAL ACUITY REDUCED [None]
  - VITREOUS HAEMORRHAGE [None]
